FAERS Safety Report 7769370-0 (Version None)
Quarter: 2011Q3

REPORT INFORMATION
  Report Type: 
  Country: None (occurrence: None)
  Receive Date: 20110922
  Receipt Date: 20110603
  Transmission Date: 20111222
  Serious: No
  Sender: FDA-Public Use
  Company Number: US-ASTRAZENECA-2011SE34629

PATIENT
  Age: 64 Year
  Sex: Female

DRUGS (4)
  1. SEROQUEL [Suspect]
     Indication: SLEEP DISORDER
     Route: 048
     Dates: start: 20080101
  2. ALTASE [Concomitant]
     Indication: HYPERTENSION
  3. MORPHINE [Concomitant]
     Indication: PAIN
  4. VICODIN [Concomitant]
     Indication: BREAKTHROUGH PAIN

REACTIONS (5)
  - WEIGHT INCREASED [None]
  - DIZZINESS POSTURAL [None]
  - OFF LABEL USE [None]
  - BREAST DISORDER [None]
  - HYPERHIDROSIS [None]
